FAERS Safety Report 19854642 (Version 1)
Quarter: 2021Q3

REPORT INFORMATION
  Report Type: Spontaneous
  Country: US (occurrence: US)
  Receive Date: 20210920
  Receipt Date: 20210920
  Transmission Date: 20211014
  Serious: No
  Sender: FDA-Public Use
  Company Number: US-GLAXOSMITHKLINE-US2021AMR195111

PATIENT

DRUGS (6)
  1. VIMPAT [Concomitant]
     Active Substance: LACOSAMIDE
     Indication: PAIN
     Dosage: 50 MG, BID
  2. VALACYCLOVIR [Suspect]
     Active Substance: VALACYCLOVIR HYDROCHLORIDE
     Indication: HERPES ZOSTER
     Dosage: 40 MG, BID
  3. PREDNISONE. [Suspect]
     Active Substance: PREDNISONE
     Indication: HERPES ZOSTER
     Dosage: UNK, IT WAS 4 PILLS A DAY FOR 4 DAYS
  4. GABAPENTIN. [Concomitant]
     Active Substance: GABAPENTIN
     Indication: PAIN
     Dosage: 300 MG
  5. PREDNISONE. [Suspect]
     Active Substance: PREDNISONE
     Indication: PAIN
  6. PFIZER?BIONTECH COVID?19 VACCINE [Suspect]
     Active Substance: TOZINAMERAN
     Indication: COVID-19 PROPHYLAXIS
     Dosage: UNK
     Dates: start: 202101

REACTIONS (6)
  - Pain [Unknown]
  - Pain in extremity [Unknown]
  - Ill-defined disorder [Unknown]
  - Drug ineffective [Unknown]
  - Arthralgia [Unknown]
  - Fatigue [Unknown]
